FAERS Safety Report 10216905 (Version 1)
Quarter: 2014Q2

REPORT INFORMATION
  Report Type: Spontaneous
  Country: US (occurrence: US)
  Receive Date: 20140604
  Receipt Date: 20140604
  Transmission Date: 20141212
  Serious: No
  Sender: FDA-Public Use
  Company Number: US-ASTRAZENECA-2014SE35941

PATIENT
  Age: 67 Year
  Sex: Female
  Weight: 92.5 kg

DRUGS (10)
  1. CRESTOR [Suspect]
     Indication: BLOOD CHOLESTEROL ABNORMAL
     Route: 048
     Dates: start: 201312, end: 201312
  2. CRESTOR [Suspect]
     Indication: BLOOD CHOLESTEROL ABNORMAL
     Route: 048
     Dates: start: 201312
  3. CRESTOR [Suspect]
     Indication: BLOOD CHOLESTEROL ABNORMAL
     Route: 048
  4. DIOVAN [Concomitant]
     Indication: HYPERTENSION
     Dosage: 160-12.5HCT DAILY
     Route: 048
     Dates: start: 2007
  5. METFORMIN [Concomitant]
     Indication: DIABETES MELLITUS
     Route: 048
     Dates: start: 2007
  6. FISH OIL [Concomitant]
     Route: 048
     Dates: start: 2007
  7. ALPHA LIPOIC ACID [Concomitant]
     Indication: DIABETES MELLITUS
     Dosage: 300MG SUSTAINED BID
     Route: 048
     Dates: start: 2007
  8. VITAMIN B COMPLEX [Concomitant]
     Indication: NEURALGIA
     Dosage: 2 TABLETS DAILY
     Route: 048
     Dates: start: 2007
  9. D3 [Concomitant]
     Indication: VITAMIN D DEFICIENCY
     Route: 048
     Dates: start: 2009
  10. B12 [Concomitant]
     Indication: NERVE INJURY
     Route: 048
     Dates: start: 2010

REACTIONS (7)
  - Eye disorder [Unknown]
  - Blood glucose abnormal [Unknown]
  - Muscle spasms [Recovered/Resolved]
  - Blood glucose increased [Not Recovered/Not Resolved]
  - Memory impairment [Unknown]
  - Glycosylated haemoglobin increased [Unknown]
  - Intentional product misuse [Unknown]
